FAERS Safety Report 7038589-9 (Version None)
Quarter: 2010Q4

REPORT INFORMATION
  Report Type: 
  Country: None (occurrence: None)
  Receive Date: 20101011
  Receipt Date: 20100727
  Transmission Date: 20110411
  Serious: Yes (Hospitalization, Other)
  Sender: FDA-Public Use
  Company Number: US-PFIZER INC-2006066744

PATIENT
  Sex: Female

DRUGS (11)
  1. NEURONTIN [Suspect]
     Indication: PAIN
     Dosage: 300 MG, UNK
     Dates: start: 20030523, end: 20040101
  2. NEURONTIN [Suspect]
     Dosage: 600 MG, UNK
     Dates: start: 20040201, end: 20040806
  3. AMBIEN [Suspect]
     Dosage: UNK
  4. RESTORIL [Suspect]
     Dosage: UNK
  5. METHADONE [Concomitant]
     Dosage: UNK MG, UNK
     Dates: start: 20030616, end: 20030910
  6. SOMA [Concomitant]
     Dosage: UNK MG, UNK
  7. TRAZODONE HCL [Concomitant]
     Dosage: UNK MG, UNK
  8. VICODIN [Concomitant]
     Dosage: UNK
  9. EFFEXOR [Concomitant]
     Dosage: UNK MG, UNK
     Dates: start: 20040129, end: 20040802
  10. CARISOPRODOL [Concomitant]
     Dosage: UNK MG, UNK
     Dates: start: 20030409, end: 20040802
  11. METHADOSE [Concomitant]
     Dosage: UNK
     Dates: start: 20030910, end: 20040730

REACTIONS (3)
  - DRUG INEFFECTIVE [None]
  - INTENTIONAL OVERDOSE [None]
  - SUICIDE ATTEMPT [None]
